FAERS Safety Report 8945736 (Version 1)
Quarter: 2012Q4

REPORT INFORMATION
  Report Type: 
  Country: US (occurrence: US)
  Receive Date: 20121204
  Receipt Date: 20121204
  Transmission Date: 20130627
  Serious: No
  Sender: FDA-Public Use
  Company Number: US-AMGEN-USASP2012061725

PATIENT
  Age: 39 Year
  Sex: Female
  Weight: 55.33 kg

DRUGS (3)
  1. ENBREL [Suspect]
     Indication: PSORIASIS
     Dosage: 50 mg, 2 times/wk
     Route: 058
     Dates: start: 20120904
  2. FLUOCINONIDE [Concomitant]
     Indication: PRURITUS
     Dosage: 0.05 %, bid
     Dates: start: 20120918
  3. FLUOCINONIDE [Concomitant]
     Indication: ERYTHEMA

REACTIONS (5)
  - Fatigue [Not Recovered/Not Resolved]
  - Oral herpes [Not Recovered/Not Resolved]
  - Injection site erythema [Recovered/Resolved]
  - Injection site pain [Not Recovered/Not Resolved]
  - Injection site swelling [Not Recovered/Not Resolved]
